FAERS Safety Report 23267456 (Version 1)
Quarter: 2023Q4

REPORT INFORMATION
  Report Type: Report from Study
  Country: US (occurrence: US)
  Receive Date: 20231206
  Receipt Date: 20231206
  Transmission Date: 20240110
  Serious: Yes (Other)
  Sender: FDA-Public Use
  Company Number: US-ABBVIE-5521393

PATIENT
  Age: 80 Year
  Sex: Female
  Weight: 49.895 kg

DRUGS (3)
  1. RESTASIS [Suspect]
     Active Substance: CYCLOSPORINE
     Indication: Dry eye
     Dosage: 1 DROP ON BOTH EYES, FORM STRENGTH: 0.4 MILLILITRE(S), 0.5MG/ML
     Route: 047
     Dates: start: 202302, end: 202309
  2. RESTASIS [Suspect]
     Active Substance: CYCLOSPORINE
     Dosage: 1 DROP ON BOTH EYES, FORM STRENGTH: 0.4 MILLILITRE(S), 0.5MG/ML
     Route: 047
     Dates: start: 202309
  3. REFRESH TEARS [Suspect]
     Active Substance: CARBOXYMETHYLCELLULOSE SODIUM
     Indication: Dry eye
     Route: 047
     Dates: start: 2021

REACTIONS (2)
  - Blindness [Recovered/Resolved]
  - Visual impairment [Recovered/Resolved]

NARRATIVE: CASE EVENT DATE: 20230801
